FAERS Safety Report 4559923-5 (Version None)
Quarter: 2005Q1

REPORT INFORMATION
  Report Type: 
  Country: None (occurrence: None)
  Receive Date: 20050107
  Receipt Date: 20041118
  Transmission Date: 20050727
  Serious: No
  Sender: FDA-Public Use
  Company Number: 04P-163-0280993-00

PATIENT
  Sex: Female

DRUGS (2)
  1. OMNICEF [Suspect]
     Indication: SINUSITIS
     Dosage: PER ORAL
     Route: 048
     Dates: start: 20041101, end: 20041101
  2. NASAL SPRAY [Concomitant]

REACTIONS (2)
  - CLOSTRIDIAL INFECTION [None]
  - DIARRHOEA HAEMORRHAGIC [None]
